FAERS Safety Report 4398243-9 (Version None)
Quarter: 2004Q3

REPORT INFORMATION
  Report Type: 
  Country: None (occurrence: None)
  Receive Date: 20040715
  Receipt Date: 20040505
  Transmission Date: 20050211
  Serious: Yes (Life-Threatening, Hospitalization)
  Sender: FDA-Public Use
  Company Number: PHEH2004US05035

PATIENT
  Age: 70 Year
  Sex: Female

DRUGS (9)
  1. DIOVAN [Suspect]
     Indication: HYPERTENSION
     Dosage: 160 MG, QD
     Route: 048
     Dates: start: 20020101, end: 20040430
  2. METFORMIN HCL [Concomitant]
     Indication: DIABETES MELLITUS
  3. PRANDIN [Concomitant]
     Indication: DIABETES MELLITUS
  4. ATENOLOL [Concomitant]
  5. NORVASC [Concomitant]
  6. ISOSORBIDE DINITRATE [Concomitant]
  7. PRAVACHOL [Concomitant]
  8. ALLEGRA [Concomitant]
  9. FRUSEMIDE [Concomitant]

REACTIONS (1)
  - ANAPHYLACTIC REACTION [None]
